FAERS Safety Report 16420361 (Version 1)
Quarter: 2019Q2

REPORT INFORMATION
  Report Type: Spontaneous
  Country: US (occurrence: US)
  Receive Date: 20190612
  Receipt Date: 20190612
  Transmission Date: 20190711
  Serious: Yes (Hospitalization)
  Sender: FDA-Public Use
  Company Number: US-AMREGENT-20191153

PATIENT
  Age: 77 Year
  Sex: Female

DRUGS (3)
  1. NO DRUG NAME [Concomitant]
     Dosage: UNKNOWN
     Route: 065
  2. HYDRALAZINE HCL INJECTION, USP (0901-25) [Suspect]
     Active Substance: HYDRALAZINE HYDROCHLORIDE
     Dosage: 20 MG
     Route: 042
  3. MORPHINE [Concomitant]
     Active Substance: MORPHINE
     Dosage: UNKNOWN
     Route: 042

REACTIONS (5)
  - Hypotension [Recovered/Resolved]
  - Vomiting [Unknown]
  - Dizziness [Unknown]
  - Acute kidney injury [Recovering/Resolving]
  - Nausea [Unknown]
